FAERS Safety Report 6533624-6 (Version None)
Quarter: 2010Q1

REPORT INFORMATION
  Report Type: 
  Country: None (occurrence: None)
  Receive Date: 20100108
  Receipt Date: 20100108
  Transmission Date: 20100710
  Serious: Yes (Other)
  Sender: FDA-Public Use
  Company Number: None

PATIENT
  Age: 66 Year
  Sex: Female
  Weight: 97.5234 kg

DRUGS (2)
  1. LYRICA [Suspect]
     Indication: FIBROMYALGIA
     Dosage: 150MG 1 TIME A DAY
     Dates: start: 20080818, end: 20100107
  2. LYRICA [Suspect]
     Indication: PAIN
     Dosage: 150MG 1 TIME A DAY
     Dates: start: 20080818, end: 20100107

REACTIONS (16)
  - ACTIVITIES OF DAILY LIVING IMPAIRED [None]
  - APHASIA [None]
  - BACK PAIN [None]
  - DEPRESSION [None]
  - DIARRHOEA [None]
  - DIZZINESS [None]
  - DYSKINESIA [None]
  - FLATULENCE [None]
  - HEADACHE [None]
  - HIP ARTHROPLASTY [None]
  - JOINT SWELLING [None]
  - PRURITUS [None]
  - TREMOR [None]
  - URINARY INCONTINENCE [None]
  - VISION BLURRED [None]
  - WHEEZING [None]
